FAERS Safety Report 4754388-2 (Version None)
Quarter: 2005Q3

REPORT INFORMATION
  Report Type: 
  Country: None (occurrence: None)
  Receive Date: 20050829
  Receipt Date: 20050815
  Transmission Date: 20060218
  Serious: Yes (Hospitalization)
  Sender: FDA-Public Use
  Company Number: US-AMGEN-US146955

PATIENT
  Sex: Female
  Weight: 43.1 kg

DRUGS (4)
  1. EPOGEN [Suspect]
     Indication: ANAEMIA
     Dates: start: 20010801
  2. AVAPRO [Concomitant]
  3. LISINOPRIL [Concomitant]
  4. IRON [Concomitant]

REACTIONS (5)
  - BLOOD CREATININE INCREASED [None]
  - CONDITION AGGRAVATED [None]
  - HYPERTENSION [None]
  - MALAISE [None]
  - RENAL HAEMATOMA [None]
